FAERS Safety Report 8580136-4 (Version None)
Quarter: 2012Q3

REPORT INFORMATION
  Report Type: 
  Country: None (occurrence: None)
  Receive Date: 20120808
  Receipt Date: 20120731
  Transmission Date: 20120928
  Serious: Yes (Other)
  Sender: FDA-Public Use
  Company Number: US-PFIZER INC-2012180094

PATIENT
  Age: 50 Year
  Sex: Male

DRUGS (2)
  1. LYRICA [Suspect]
     Dosage: 100 MG, 4X/DAY
  2. LYRICA [Suspect]
     Indication: NEURALGIA
     Dosage: 300 MG/DAY

REACTIONS (3)
  - COGNITIVE DISORDER [None]
  - ARTHROPATHY [None]
  - ROAD TRAFFIC ACCIDENT [None]
